FAERS Safety Report 9081727 (Version 1)
Quarter: 2013Q1

REPORT INFORMATION
  Report Type: Report from Study
  Country: US (occurrence: US)
  Receive Date: 20130130
  Receipt Date: 20130130
  Transmission Date: 20140127
  Serious: No
  Sender: FDA-Public Use
  Company Number: US-ABBOTT-12P-163-0978938-00

PATIENT
  Age: 33 Year
  Sex: Female

DRUGS (10)
  1. HUMIRA [Suspect]
     Indication: RHEUMATOID ARTHRITIS
  2. NAPROSYN [Concomitant]
     Indication: PRODUCT USED FOR UNKNOWN INDICATION
  3. PLAQUENIL [Concomitant]
     Indication: PRODUCT USED FOR UNKNOWN INDICATION
  4. CLARITIN EXTRA [Concomitant]
     Indication: HYPERSENSITIVITY
  5. VERAMYST [Concomitant]
     Indication: HYPERSENSITIVITY
  6. TRAZODONE [Concomitant]
     Indication: MUSCLE RELAXANT THERAPY
  7. NEXIUM [Concomitant]
  8. AMBIEN [Concomitant]
     Indication: INSOMNIA
  9. IRON [Concomitant]
     Indication: ANAEMIA
  10. MULTIVIT B [Concomitant]

REACTIONS (5)
  - Mobility decreased [Not Recovered/Not Resolved]
  - Local swelling [Not Recovered/Not Resolved]
  - Incorrect dose administered [Not Recovered/Not Resolved]
  - Incorrect dose administered [Not Recovered/Not Resolved]
  - Pain [Unknown]
